FAERS Safety Report 20647621 (Version 1)
Quarter: 2022Q1

REPORT INFORMATION
  Report Type: Report from Study
  Country: US (occurrence: US)
  Receive Date: 20220329
  Receipt Date: 20220329
  Transmission Date: 20220423
  Serious: Yes (Hospitalization, Other)
  Sender: FDA-Public Use
  Company Number: US-BAYER-2022A043553

PATIENT
  Age: 80 Year
  Sex: Male

DRUGS (2)
  1. BAYER LOW DOSE [Suspect]
     Active Substance: ASPIRIN
     Indication: Haematoma
  2. WARFARIN [Suspect]
     Active Substance: WARFARIN
     Dosage: 81 MG

REACTIONS (2)
  - Pericardial haemorrhage [None]
  - Labelled drug-drug interaction medication error [None]
